FAERS Safety Report 9344803 (Version 3)
Quarter: 2014Q1

REPORT INFORMATION
  Report Type: Spontaneous
  Country: US (occurrence: US)
  Receive Date: 20130612
  Receipt Date: 20140213
  Transmission Date: 20141002
  Serious: Yes (Hospitalization)
  Sender: FDA-Public Use
  Company Number: US-GLAXOSMITHKLINE-A1025972A

PATIENT
  Age: 58 Year
  Sex: Female

DRUGS (3)
  1. VERAMYST [Suspect]
     Indication: RHINITIS ALLERGIC
     Dosage: 4PUFF TWICE PER DAY
     Route: 045
  2. ADVAIR [Concomitant]
  3. MOBIC [Concomitant]

REACTIONS (3)
  - Frontal sinus operation [Recovering/Resolving]
  - Accidental overdose [Recovering/Resolving]
  - Cyst removal [Recovering/Resolving]
